FAERS Safety Report 23814512 (Version 1)
Quarter: 2024Q2

REPORT INFORMATION
  Report Type: Spontaneous
  Country: SE (occurrence: SE)
  Receive Date: 20240503
  Receipt Date: 20240503
  Transmission Date: 20240715
  Serious: Yes (Other)
  Sender: FDA-Public Use
  Company Number: None

PATIENT
  Sex: Male

DRUGS (1)
  1. ROSUVASTATIN [Suspect]
     Active Substance: ROSUVASTATIN
     Indication: Product used for unknown indication
     Route: 065

REACTIONS (6)
  - Retinal oedema [Unknown]
  - Macular hole [Unknown]
  - Macular degeneration [Unknown]
  - Retinal drusen [Unknown]
  - Vitreous detachment [Unknown]
  - Glaucoma [Unknown]
